FAERS Safety Report 4620211-X (Version None)
Quarter: 2005Q1

REPORT INFORMATION
  Report Type: 
  Country: None (occurrence: None)
  Receive Date: 20050324
  Receipt Date: 20050311
  Transmission Date: 20050727
  Serious: No
  Sender: FDA-Public Use
  Company Number: R301137-3002-CDN

PATIENT
  Age: 50 Year
  Sex: Male
  Weight: 92.7 kg

DRUGS (2)
  1. RABEPRAZOLE SODIUM [Suspect]
     Dosage: 20 MG, ORAL
     Route: 048
     Dates: start: 20040922, end: 20041104
  2. NEXIUM [Concomitant]

REACTIONS (2)
  - IMPAIRED WORK ABILITY [None]
  - MEMORY IMPAIRMENT [None]
